FAERS Safety Report 16404361 (Version 2)
Quarter: 2019Q2

REPORT INFORMATION
  Report Type: Spontaneous
  Country: US (occurrence: US)
  Receive Date: 20190607
  Receipt Date: 20190612
  Transmission Date: 20190711
  Serious: No
  Sender: FDA-Public Use
  Company Number: US-PFIZER INC-2019245020

PATIENT
  Age: 33 Year
  Sex: Female

DRUGS (2)
  1. ATORVASTATIN CALCIUM. [Suspect]
     Active Substance: ATORVASTATIN CALCIUM
     Dosage: UNK
  2. QUETIAPINE. [Suspect]
     Active Substance: QUETIAPINE
     Dosage: UNK

REACTIONS (1)
  - Drug hypersensitivity [Unknown]
